FAERS Safety Report 14368658 (Version 1)
Quarter: 2018Q1

REPORT INFORMATION
  Report Type: Spontaneous
  Country: US (occurrence: US)
  Receive Date: 20180109
  Receipt Date: 20180109
  Transmission Date: 20180509
  Serious: No
  Sender: FDA-Public Use
  Company Number: US-PFIZER INC-2017083599

PATIENT
  Age: 3 Year
  Sex: Male
  Weight: 21.32 kg

DRUGS (2)
  1. GENOTROPIN [Suspect]
     Active Substance: SOMATROPIN
     Indication: PRADER-WILLI SYNDROME
     Dosage: 1 MG, 1X/DAY (ONCE AT NIGHT, IN HIS THIGHS)
     Dates: start: 201701, end: 20170221
  2. GENOTROPIN [Suspect]
     Active Substance: SOMATROPIN
     Dosage: UNK

REACTIONS (5)
  - Drug dose omission [Not Recovered/Not Resolved]
  - Device issue [Unknown]
  - Injection site discomfort [Unknown]
  - Abnormal behaviour [Unknown]
  - Injection site pain [Unknown]

NARRATIVE: CASE EVENT DATE: 20170222
